FAERS Safety Report 9729909 (Version 2)
Quarter: 2013Q4

REPORT INFORMATION
  Report Type: Spontaneous
  Country: IT (occurrence: None)
  Receive Date: 20131203
  Receipt Date: 20131211
  Transmission Date: 20140711
  Serious: Yes (Hospitalization)
  Sender: FDA-Public Use
  Company Number: AUR-APL-2013-09978

PATIENT
  Sex: 0

DRUGS (7)
  1. RAMIPRIL [Suspect]
     Indication: PRODUCT USED FOR UNKNOWN INDICATION
  2. SERTRALINE [Suspect]
     Indication: PRODUCT USED FOR UNKNOWN INDICATION
  3. DIGOXIN [Suspect]
     Indication: PRODUCT USED FOR UNKNOWN INDICATION
  4. DIGOXIN [Suspect]
  5. FUROSEMIDE [Suspect]
     Indication: PRODUCT USED FOR UNKNOWN INDICATION
  6. TRAZODONE HYDROCHLORIDE [Suspect]
     Indication: PRODUCT USED FOR UNKNOWN INDICATION
  7. POTASSIUM CANRENOATE [Suspect]
     Indication: PRODUCT USED FOR UNKNOWN INDICATION

REACTIONS (2)
  - Arrhythmia [None]
  - Drug interaction [None]
